FAERS Safety Report 6752601-3 (Version None)
Quarter: 2010Q2

REPORT INFORMATION
  Report Type: 
  Country: None (occurrence: None)
  Receive Date: 20100601
  Receipt Date: 20100601
  Transmission Date: 20101027
  Serious: Yes (Other)
  Sender: FDA-Public Use
  Company Number: None

PATIENT
  Sex: Female
  Weight: 68.4932 kg

DRUGS (2)
  1. SAVELLA [Suspect]
     Indication: FIBROMYALGIA
     Dosage: 50 MG BID PO
     Route: 048
     Dates: start: 20100323, end: 20100511
  2. SAVELLA [Suspect]
     Indication: FIBROMYALGIA
     Dosage: 25 MG  BID PO
     Route: 048
     Dates: start: 20100518, end: 20100526

REACTIONS (3)
  - BLOOD PRESSURE INADEQUATELY CONTROLLED [None]
  - BLOOD PRESSURE INCREASED [None]
  - GASTROENTERITIS VIRAL [None]
